FAERS Safety Report 9504427 (Version 1)
Quarter: 2013Q3

REPORT INFORMATION
  Report Type: Spontaneous
  Country: US (occurrence: US)
  Receive Date: 20130906
  Receipt Date: 20130906
  Transmission Date: 20140515
  Serious: Yes (Hospitalization)
  Sender: FDA-Public Use
  Company Number: US-JNJFOC-20130900143

PATIENT
  Age: 55 Year
  Sex: Male

DRUGS (6)
  1. INVOKANA [Suspect]
     Indication: DIABETES MELLITUS MANAGEMENT
     Route: 048
     Dates: start: 2013, end: 201308
  2. BACTRIM [Suspect]
     Indication: ADVERSE EVENT
     Dates: start: 201308, end: 201308
  3. LASIX [Suspect]
     Indication: PRODUCT USED FOR UNKNOWN INDICATION
     Dates: end: 201308
  4. ACE INHIBITOR NOS [Suspect]
     Indication: PRODUCT USED FOR UNKNOWN INDICATION
     Dates: end: 201308
  5. ANGIOTENSIN RECEPTOR BLOCKER NOS [Suspect]
     Indication: PRODUCT USED FOR UNKNOWN INDICATION
     Dates: end: 201308
  6. ANTIDIABETIC MEDICATION [Suspect]
     Indication: DIABETES MELLITUS
     Dates: end: 201308

REACTIONS (2)
  - Renal failure [Not Recovered/Not Resolved]
  - Adverse event [Unknown]
